FAERS Safety Report 6807353-5 (Version None)
Quarter: 2010Q2

REPORT INFORMATION
  Report Type: 
  Country: None (occurrence: None)
  Receive Date: 20100629
  Receipt Date: 20080910
  Transmission Date: 20101027
  Serious: No
  Sender: FDA-Public Use
  Company Number: US-PFIZER INC-2008076333

PATIENT
  Sex: Male
  Weight: 102.27 kg

DRUGS (4)
  1. VIAGRA [Suspect]
     Indication: ERECTILE DYSFUNCTION
     Dates: start: 20080906
  2. GLYBURIDE [Concomitant]
     Indication: DIABETES MELLITUS
  3. INSULIN [Concomitant]
     Indication: DIABETES MELLITUS
  4. ACETYLSALICYLIC ACID [Concomitant]

REACTIONS (6)
  - ABDOMINAL PAIN UPPER [None]
  - FEELING HOT [None]
  - GROIN PAIN [None]
  - HYPERHIDROSIS [None]
  - PROCTALGIA [None]
  - UNEVALUABLE EVENT [None]
